FAERS Safety Report 8825144 (Version 1)
Quarter: 2012Q4

REPORT INFORMATION
  Report Type: 
  Country: US (occurrence: US)
  Receive Date: 20121004
  Receipt Date: 20121004
  Transmission Date: 20130627
  Serious: Yes (Death, Hospitalization)
  Sender: FDA-Public Use
  Company Number: US-GLAXOSMITHKLINE-A0840600A

PATIENT
  Age: 66 Year
  Sex: Female
  Weight: 123.2 kg

DRUGS (1)
  1. AVANDIA [Suspect]
     Indication: DIABETES MELLITUS
     Dosage: 8MG Per day
     Route: 048
     Dates: start: 200108, end: 20050223

REACTIONS (3)
  - Cardio-respiratory arrest [Fatal]
  - Cardiac failure congestive [Unknown]
  - Cerebrovascular accident [Unknown]
